FAERS Safety Report 13349083 (Version 1)
Quarter: 2017Q1

REPORT INFORMATION
  Report Type: Spontaneous
  Country: US (occurrence: US)
  Receive Date: 20170320
  Receipt Date: 20170320
  Transmission Date: 20170428
  Serious: No
  Sender: FDA-Public Use
  Company Number: US-ALEXION PHARMACEUTICALS INC.-A201702619

PATIENT
  Age: 41 Year
  Sex: Female

DRUGS (3)
  1. SOLIRIS [Suspect]
     Active Substance: ECULIZUMAB
     Indication: PAROXYSMAL NOCTURNAL HAEMOGLOBINURIA
     Dosage: 900 MG, Q2W
     Route: 042
     Dates: start: 20090116, end: 20170228
  2. DANAZOL. [Concomitant]
     Active Substance: DANAZOL
     Dosage: 200 MG, BID (1 TABLET)
     Route: 048
     Dates: start: 20170201
  3. DANAZOL. [Concomitant]
     Active Substance: DANAZOL
     Indication: PAROXYSMAL NOCTURNAL HAEMOGLOBINURIA
     Dosage: 200 MG, QD (1 TABLET)
     Route: 048
     Dates: start: 20160822, end: 20170201

REACTIONS (4)
  - Myalgia [Not Recovered/Not Resolved]
  - Haemoglobin abnormal [Unknown]
  - Headache [Not Recovered/Not Resolved]
  - Hypertension [Unknown]

NARRATIVE: CASE EVENT DATE: 20170310
